FAERS Safety Report 9819801 (Version 1)
Quarter: 2014Q1

REPORT INFORMATION
  Report Type: Spontaneous
  Country: US (occurrence: US)
  Receive Date: 20140116
  Receipt Date: 20140116
  Transmission Date: 20141002
  Serious: Yes (Other)
  Sender: FDA-Public Use
  Company Number: US-BRISTOL-MYERS SQUIBB COMPANY-20008421

PATIENT
  Age: 81 Year
  Sex: Female

DRUGS (1)
  1. ELIQUIS [Suspect]
     Indication: ATRIAL FIBRILLATION
     Dosage: ONGOING
     Route: 048
     Dates: start: 20140107

REACTIONS (1)
  - Chronic obstructive pulmonary disease [Unknown]
